FAERS Safety Report 5981765-4 (Version None)
Quarter: 2008Q4

REPORT INFORMATION
  Report Type: 
  Country: None (occurrence: None)
  Receive Date: 20081205
  Receipt Date: 20081201
  Transmission Date: 20090506
  Serious: No
  Sender: FDA-Public Use
  Company Number: US-B.I. PHARMACEUTICALS,INC./RIDGEFIELD-2008-BP-18071BP

PATIENT
  Sex: Male

DRUGS (9)
  1. SPIRIVA [Suspect]
     Indication: CHRONIC OBSTRUCTIVE PULMONARY DISEASE
     Dosage: 18MCG
     Route: 055
     Dates: start: 20080201, end: 20081101
  2. FUROSEMIDE [Concomitant]
  3. ATENOLOL [Concomitant]
     Indication: HYPERTENSION
  4. ALLOPURINOL [Concomitant]
  5. ZOCOR [Concomitant]
  6. FELODIPINE [Concomitant]
     Indication: HYPERTENSION
  7. GLYBURIDE [Concomitant]
     Indication: DIABETES MELLITUS
  8. LISINOPRIL [Concomitant]
     Indication: HYPERTENSION
  9. ASPIRIN [Concomitant]
     Indication: ARTERIOSCLEROSIS

REACTIONS (2)
  - AGEUSIA [None]
  - VISION BLURRED [None]
